FAERS Safety Report 7883208-2 (Version None)
Quarter: 2011Q4

REPORT INFORMATION
  Report Type: 
  Country: None (occurrence: None)
  Receive Date: 20111101
  Receipt Date: 20111101
  Transmission Date: 20120403
  Serious: Yes (Hospitalization)
  Sender: FDA-Public Use
  Company Number: None

PATIENT
  Age: 75 Year
  Sex: Male
  Weight: 74.7 kg

DRUGS (2)
  1. NAPROXEN [Suspect]
     Indication: PAIN
     Dosage: 375 MG BID PO
     Route: 048
     Dates: start: 20110405, end: 20111023
  2. NAPROXEN [Suspect]
     Indication: INFLAMMATION
     Dosage: 375 MG BID PO
     Route: 048
     Dates: start: 20110405, end: 20111023

REACTIONS (3)
  - RECTAL ULCER [None]
  - LARGE INTESTINAL ULCER [None]
  - GASTROINTESTINAL HAEMORRHAGE [None]
